FAERS Safety Report 22863397 (Version 5)
Quarter: 2024Q1

REPORT INFORMATION
  Report Type: Report from Study
  Country: US (occurrence: US)
  Receive Date: 20230824
  Receipt Date: 20240311
  Transmission Date: 20240410
  Serious: No
  Sender: FDA-Public Use
  Company Number: US-ACADIA PHARMACEUTICALS INC.-ACA-2023-TRF-003228

PATIENT
  Age: 11 Year
  Sex: Female

DRUGS (15)
  1. DAYBUE [Suspect]
     Active Substance: TROFINETIDE
     Indication: Rett syndrome
     Dosage: 5 MILLILITER, BID, G-TUBE
  2. DAYBUE [Suspect]
     Active Substance: TROFINETIDE
     Dosage: 15 MILLILITER, BID, G-TUBE
  3. DAYBUE [Suspect]
     Active Substance: TROFINETIDE
     Dosage: 25 MILLILITER, BID, G-TUBE
  4. DAYBUE [Suspect]
     Active Substance: TROFINETIDE
     Dosage: 5 MILLILITER, BID, G-TUBE
  5. DAYBUE [Suspect]
     Active Substance: TROFINETIDE
     Dosage: 40 MILLILITER, BID
     Dates: end: 20240127
  6. DAYBUE [Suspect]
     Active Substance: TROFINETIDE
     Dosage: 5 MILLILITER, BID
  7. KEPPRA [Concomitant]
     Active Substance: LEVETIRACETAM
  8. OXCARBAZEPINE [Concomitant]
     Active Substance: OXCARBAZEPINE
     Dosage: 300 MG/5 ML (TAKE 12 MILLILITER, BID, FOR 30 DAYS)
     Route: 048
  9. ESCITALOPRAM [Concomitant]
     Active Substance: ESCITALOPRAM OXALATE
     Dosage: 5 MG/ 5 ML (TAKE 7 MILLILITER EVERY DAY FOR 30 DAYS)
     Route: 048
  10. CLONIDINE [Concomitant]
     Active Substance: CLONIDINE
     Dosage: 0.1 MG (TAKE 1.5 TABLET EVERY DAY)
  11. MELATONIN [Concomitant]
     Active Substance: MELATONIN
     Dosage: 7 MILLIGRAM QHS
  12. NORETHINDRONE ACETATE [Concomitant]
     Active Substance: NORETHINDRONE ACETATE
     Dosage: 5 MILLIGRAM, (TAKE 1/2 TABLET BY MOUTH DAILY)
     Route: 048
  13. CLOBAZAM [Concomitant]
     Active Substance: CLOBAZAM
     Dosage: 2.5 MG/ML (TAKE 3 ML TWICE A DAY FOR 30 DAYS)
     Route: 048
     Dates: start: 20240122
  14. CLONIDINE HYDROCHLORIDE [Concomitant]
     Active Substance: CLONIDINE HYDROCHLORIDE
     Dosage: 0.1 MILLIGRAM TABLET EVERY DAY
     Route: 048
     Dates: start: 20231127
  15. TRETINOIN [Concomitant]
     Active Substance: TRETINOIN
     Dosage: 0.05% TOPICAL CREAM, EVERY DAY AT BEDTIME FOR 30 DAYS
     Route: 061

REACTIONS (9)
  - Product dose omission issue [Unknown]
  - Weight decreased [Recovering/Resolving]
  - Abdominal discomfort [Not Recovered/Not Resolved]
  - Underdose [Not Recovered/Not Resolved]
  - Weight decreased [Not Recovered/Not Resolved]
  - Diarrhoea [Not Recovered/Not Resolved]
  - Vomiting [Recovered/Resolved]
  - Diarrhoea [Recovered/Resolved]
  - Diarrhoea [Not Recovered/Not Resolved]

NARRATIVE: CASE EVENT DATE: 20230404
